FAERS Safety Report 18970764 (Version 1)
Quarter: 2021Q1

REPORT INFORMATION
  Report Type: Spontaneous
  Country: DE (occurrence: DE)
  Receive Date: 20210304
  Receipt Date: 20210304
  Transmission Date: 20210420
  Serious: Yes (Life-Threatening, Hospitalization, Other)
  Sender: FDA-Public Use
  Company Number: DE-PURDUE-USA-2021-0220497

PATIENT
  Age: 6 Year
  Sex: Male
  Weight: 36 kg

DRUGS (2)
  1. NON?PMN METHYLPHENIDATE HYDROCHLORIDE [Suspect]
     Active Substance: METHYLPHENIDATE HYDROCHLORIDE
     Indication: ATTENTION DEFICIT HYPERACTIVITY DISORDER
     Dosage: 10 MG, DAILY
     Route: 048
  2. NON?PMN METHYLPHENIDATE HYDROCHLORIDE [Suspect]
     Active Substance: METHYLPHENIDATE HYDROCHLORIDE
     Dosage: 5 MG, DAILY (0.14 MG PER KG BODY WEIGHT)
     Route: 048

REACTIONS (4)
  - Acute coronary syndrome [Recovered/Resolved]
  - Acute myocardial infarction [Recovered/Resolved]
  - Coronary artery occlusion [Recovered/Resolved]
  - Coronary artery dissection [Recovered/Resolved]
